FAERS Safety Report 8008215-0 (Version None)
Quarter: 2011Q4

REPORT INFORMATION
  Report Type: 
  Country: None (occurrence: None)
  Receive Date: 20111227
  Receipt Date: 20111220
  Transmission Date: 20120403
  Serious: Yes (Other)
  Sender: FDA-Public Use
  Company Number: CZ-JNJFOC-20111209545

PATIENT
  Age: 42 Year
  Sex: Male

DRUGS (1)
  1. STELARA [Suspect]
     Indication: PSORIASIS
     Route: 058
     Dates: start: 20090101

REACTIONS (4)
  - PNEUMONIA [None]
  - PAIN [None]
  - OROPHARYNGEAL PAIN [None]
  - FATIGUE [None]
